FAERS Safety Report 17793236 (Version 2)
Quarter: 2020Q2

REPORT INFORMATION
  Report Type: Spontaneous
  Country: JP (occurrence: JP)
  Receive Date: 20200515
  Receipt Date: 20200515
  Transmission Date: 20200714
  Serious: Yes (Hospitalization)
  Sender: FDA-Public Use
  Company Number: JP-GUERBET-JP-20200053

PATIENT
  Age: 7 Decade
  Sex: Male

DRUGS (1)
  1. LIPIODOL [Suspect]
     Active Substance: ETHIODIZED OIL
     Indication: TRANSCATHETER ARTERIAL CHEMOEMBOLISATION
     Dosage: 2 OCCURRENCES
     Route: 013

REACTIONS (2)
  - Jaundice cholestatic [Recovered/Resolved]
  - Bile duct obstruction [Recovered/Resolved]
